FAERS Safety Report 9387050 (Version 1)
Quarter: 2013Q3

REPORT INFORMATION
  Report Type: Spontaneous
  Country: NL (occurrence: None)
  Receive Date: 20130702
  Receipt Date: 20130702
  Transmission Date: 20140515
  Serious: Yes (Other)
  Sender: FDA-Public Use
  Company Number: AUR-APL-2013-05513

PATIENT
  Age: 70 Year
  Sex: Female

DRUGS (1)
  1. PANTOPRAZOLE (PANTOPRAZOLE) [Suspect]
     Indication: PROPHYLAXIS
     Dosage: 1 TABLET DAILY/20 MG.
     Route: 048
     Dates: start: 2010

REACTIONS (2)
  - Musculoskeletal pain [None]
  - Uveitis [None]
